FAERS Safety Report 4974403-0 (Version None)
Quarter: 2006Q2

REPORT INFORMATION
  Report Type: 
  Country: None (occurrence: None)
  Receive Date: 20060417
  Receipt Date: 20060410
  Transmission Date: 20061013
  Serious: Yes (Other)
  Sender: FDA-Public Use
  Company Number: US-JNJFOC-20060402420

PATIENT
  Age: 50 Year
  Sex: Female
  Weight: 53.52 kg

DRUGS (12)
  1. ELMIRON [Suspect]
     Indication: CYSTITIS INTERSTITIAL
     Route: 048
  2. AZACOL [Concomitant]
  3. URISED [Concomitant]
  4. URISED [Concomitant]
  5. URISED [Concomitant]
  6. URISED [Concomitant]
  7. URISED [Concomitant]
  8. URISED [Concomitant]
  9. URISED [Concomitant]
     Indication: CYSTITIS INTERSTITIAL
  10. ALLEGRA [Concomitant]
  11. ALLEGRA [Concomitant]
  12. CHOLESTERMINE [Concomitant]
     Indication: CONSTIPATION

REACTIONS (3)
  - DIARRHOEA [None]
  - GASTROINTESTINAL DISORDER [None]
  - WEIGHT DECREASED [None]
